FAERS Safety Report 6999202-X (Version None)
Quarter: 2010Q3

REPORT INFORMATION
  Report Type: 
  Country: None (occurrence: None)
  Receive Date: 20100920
  Receipt Date: 20100701
  Transmission Date: 20110219
  Serious: Yes (Hospitalization)
  Sender: FDA-Public Use
  Company Number: US-ASTRAZENECA-2007UW02392

PATIENT
  Sex: Female
  Weight: 79.4 kg

DRUGS (39)
  1. SEROQUEL [Suspect]
     Indication: SCHIZOAFFECTIVE DISORDER
     Route: 048
     Dates: start: 20001113, end: 20001201
  2. SEROQUEL [Suspect]
     Route: 048
     Dates: start: 20050116
  3. SEROQUEL [Suspect]
     Route: 048
     Dates: start: 20040102
  4. SEROQUEL [Suspect]
     Route: 048
     Dates: start: 20031128, end: 20031201
  5. SEROQUEL [Suspect]
     Dosage: 25 MG - 100 MG
     Route: 048
     Dates: start: 20031101
  6. SEROQUEL [Suspect]
     Route: 048
     Dates: start: 20011114
  7. ABILIFY [Concomitant]
     Dates: start: 20040102
  8. MELLARIL [Concomitant]
     Dates: start: 19970101, end: 20010101
  9. ZOCOR [Concomitant]
  10. PRAVACHOL [Concomitant]
     Route: 048
     Dates: start: 20041021
  11. LASIX [Concomitant]
     Route: 048
     Dates: start: 20041221
  12. K-DUR [Concomitant]
     Route: 048
  13. LISINOPRIL [Concomitant]
     Route: 048
  14. PLAVIX [Concomitant]
     Route: 048
  15. AMBIEN [Concomitant]
     Indication: SLEEP DISORDER
     Dates: start: 20000818
  16. AMITRIPTYLINE HCL [Concomitant]
     Dates: start: 19990815
  17. ASPIRIN [Concomitant]
     Dates: start: 19960217
  18. AVAPRO [Concomitant]
     Dates: start: 20071017
  19. CELEXA [Concomitant]
     Dosage: 20 MG - 40 MG
     Dates: start: 20020212
  20. COMBIVENT [Concomitant]
     Dosage: TWO PUFFS
     Dates: start: 20001101
  21. DIOVAN [Concomitant]
     Route: 048
     Dates: start: 20010412
  22. FUROSEMIDE [Concomitant]
     Route: 048
     Dates: start: 19981110
  23. FUROSEMIDE [Concomitant]
     Route: 048
     Dates: start: 20031015
  24. KLOR-CON [Concomitant]
     Dates: start: 20010412
  25. LANOXIN [Concomitant]
     Dates: start: 19980217
  26. LANOXIN [Concomitant]
     Dates: start: 19990722
  27. LIPITOR [Concomitant]
     Dates: start: 19990722
  28. LIPITOR [Concomitant]
     Dosage: 100 MG - 400 MG
     Dates: start: 20060929
  29. METOPROLOL [Concomitant]
     Dates: start: 20031113
  30. MONOPRIL [Concomitant]
     Dates: start: 19980217
  31. NORVASC [Concomitant]
     Dates: start: 20001215
  32. PEPCID [Concomitant]
     Dates: start: 20040115
  33. PRINIVIL [Concomitant]
     Dates: start: 20010705
  34. PRINIVIL [Concomitant]
     Dates: start: 20040115
  35. SPIRONOLACTONE [Concomitant]
     Dates: start: 20020917
  36. TRAZODONE HCL [Concomitant]
     Dates: start: 19980609
  37. TRAZODONE HCL [Concomitant]
     Dates: start: 19970804
  38. TYLENOL [Concomitant]
     Dates: start: 20001215
  39. TYLENOL [Concomitant]
     Dates: start: 20031127

REACTIONS (12)
  - ASTHMA [None]
  - CARDIAC FAILURE CONGESTIVE [None]
  - DYSPNOEA [None]
  - HAEMORRHOIDS [None]
  - HYPERLIPIDAEMIA [None]
  - HYPERTENSION [None]
  - OROPHARYNGEAL PAIN [None]
  - ROAD TRAFFIC ACCIDENT [None]
  - SINUSITIS [None]
  - TYPE 1 DIABETES MELLITUS [None]
  - TYPE 2 DIABETES MELLITUS [None]
  - URINARY TRACT INFECTION [None]
